FAERS Safety Report 16123626 (Version 1)
Quarter: 2019Q1

REPORT INFORMATION
  Report Type: Other
  Country: ES (occurrence: ES)
  Receive Date: 20190327
  Receipt Date: 20190327
  Transmission Date: 20190418
  Serious: Yes (Hospitalization)
  Sender: FDA-Public Use
  Company Number: ES-B. BRAUN MEDICAL INC.-2064765

PATIENT
  Age: 48 Year
  Sex: Male

DRUGS (3)
  1. METRONIDAZOLE INJECTION USP (5 MG/ML) IN PAB? PLASTIC CONTAINER (NDA 0 [Suspect]
     Active Substance: METRONIDAZOLE
  2. AMOXICILLIN. [Concomitant]
     Active Substance: AMOXICILLIN
  3. OMEPRAZOLE. [Concomitant]
     Active Substance: OMEPRAZOLE

REACTIONS (4)
  - Neck pain [None]
  - Dysphagia [None]
  - Muscle contractions involuntary [None]
  - Musculoskeletal stiffness [None]
